FAERS Safety Report 9012214 (Version 2)
Quarter: 2013Q1

REPORT INFORMATION
  Report Type: Spontaneous
  Country: US (occurrence: US)
  Receive Date: 20130114
  Receipt Date: 20130301
  Transmission Date: 20140127
  Serious: No
  Sender: FDA-Public Use
  Company Number: US-TEVA-378981USA

PATIENT
  Sex: Male
  Weight: 77.18 kg

DRUGS (3)
  1. PROAIR HFA [Suspect]
     Indication: ASTHMA
     Dates: start: 2009
  2. FLOVENT [Concomitant]
     Indication: ASTHMA
     Dosage: 2 DOSAGE FORMS DAILY;
  3. FORMOTEROL [Concomitant]
     Indication: ASTHMA

REACTIONS (1)
  - Drug effect decreased [Not Recovered/Not Resolved]
